FAERS Safety Report 4474162-4 (Version None)
Quarter: 2004Q4

REPORT INFORMATION
  Report Type: 
  Country: None (occurrence: None)
  Receive Date: 20041008
  Receipt Date: 20040930
  Transmission Date: 20050328
  Serious: Yes (Hospitalization)
  Sender: FDA-Public Use
  Company Number: ESWYE079301OCT04

PATIENT
  Age: 69 Year
  Sex: Male

DRUGS (4)
  1. RAPAMUNE [Suspect]
     Indication: RENAL TRANSPLANT
     Dosage: 3 MG 1X PER 1 DAY
     Route: 048
     Dates: start: 20031120, end: 20040513
  2. RANITIDINE [Concomitant]
  3. OMNIC (TAMSULOSIN HYDROCHLORIDE) [Concomitant]
  4. ATORVASTATIN (ATORVASTATIN) [Concomitant]

REACTIONS (8)
  - ABDOMINAL WALL DISORDER [None]
  - ASTHENIA [None]
  - CRACKLES LUNG [None]
  - DEHYDRATION [None]
  - DYSPNOEA [None]
  - KIDNEY TRANSPLANT REJECTION [None]
  - RENAL IMPAIRMENT [None]
  - TENDERNESS [None]
